FAERS Safety Report 24148968 (Version 2)
Quarter: 2025Q1

REPORT INFORMATION
  Report Type: Spontaneous
  Country: US (occurrence: US)
  Receive Date: 20240729
  Receipt Date: 20250204
  Transmission Date: 20250409
  Serious: Yes (Hospitalization)
  Sender: NEUROCRINE BIOSCIENCES
  Company Number: US-NEUROCRINE BIOSCIENCES INC.-2024NBI07097

PATIENT
  Age: 39 Year
  Sex: Male

DRUGS (1)
  1. INGREZZA [Suspect]
     Active Substance: VALBENAZINE
     Indication: Tardive dyskinesia
     Route: 065
     Dates: start: 202407, end: 202407

REACTIONS (7)
  - Orbital swelling [Recovered/Resolved]
  - Lethargy [Recovered/Resolved]
  - Abnormal behaviour [Recovered/Resolved]
  - Drooling [Unknown]
  - Tremor [Recovered/Resolved]
  - Parkinsonism [Unknown]
  - Fall [Recovered/Resolved]

NARRATIVE: CASE EVENT DATE: 20240701
